FAERS Safety Report 24329973 (Version 1)
Quarter: 2024Q3

REPORT INFORMATION
  Report Type: Spontaneous
  Country: US (occurrence: US)
  Receive Date: 20240917
  Receipt Date: 20240917
  Transmission Date: 20241016
  Serious: No
  Sender: MITSUBISHI TANABE PHARMA
  Company Number: US-MTPC-MTDA2024-0019353

PATIENT
  Sex: Female

DRUGS (4)
  1. RADICAVA ORS [Suspect]
     Active Substance: EDARAVONE
     Indication: Amyotrophic lateral sclerosis
     Dosage: UNK
     Dates: start: 2023, end: 202403
  2. RADICAVA ORS [Suspect]
     Active Substance: EDARAVONE
     Indication: Amyotrophic lateral sclerosis
     Dosage: UNK
     Dates: start: 2023, end: 202403
  3. RADICAVA ORS [Suspect]
     Active Substance: EDARAVONE
     Dosage: UNK
     Dates: start: 202408
  4. RADICAVA ORS [Suspect]
     Active Substance: EDARAVONE
     Dosage: UNK
     Dates: start: 202408

REACTIONS (3)
  - Gingival pain [Not Recovered/Not Resolved]
  - Gingival abscess [Recovering/Resolving]
  - Dyspnoea [Not Recovered/Not Resolved]
